FAERS Safety Report 25466582 (Version 1)
Quarter: 2025Q2

REPORT INFORMATION
  Report Type: Spontaneous
  Country: US (occurrence: US)
  Receive Date: 20250623
  Receipt Date: 20250623
  Transmission Date: 20250716
  Serious: Yes (Hospitalization)
  Sender: CSL BEHRING
  Company Number: US-BEH-2025204180

PATIENT
  Age: 37 Year
  Sex: Female

DRUGS (17)
  1. HIZENTRA [Suspect]
     Active Substance: HUMAN IMMUNOGLOBULIN G
     Indication: Immunodeficiency common variable
     Dosage: 10 G, QW
     Route: 058
  2. HIZENTRA [Suspect]
     Active Substance: HUMAN IMMUNOGLOBULIN G
     Indication: Blood immunoglobulin G decreased
     Dosage: 10 G, QW
     Route: 058
     Dates: start: 20250513
  3. ACETAZOLAMIDE [Concomitant]
     Active Substance: ACETAZOLAMIDE
  4. AMOXICILLIN [Concomitant]
     Active Substance: AMOXICILLIN
  5. BETAMETHASONE [Concomitant]
     Active Substance: BETAMETHASONE
  6. CLOBETASOL [Concomitant]
     Active Substance: CLOBETASOL
  7. DEPO-PROVERA [Concomitant]
     Active Substance: MEDROXYPROGESTERONE ACETATE
  8. FUROSEMIDE [Concomitant]
     Active Substance: FUROSEMIDE
  9. FUROSEMIDE [Concomitant]
     Active Substance: FUROSEMIDE
  10. HUMALOG [Concomitant]
     Active Substance: INSULIN LISPRO
  11. HYDROCORTISONE [Concomitant]
     Active Substance: HYDROCORTISONE
  12. LABETALOL [Concomitant]
     Active Substance: LABETALOL
  13. LANTUS [Concomitant]
     Active Substance: INSULIN GLARGINE
  14. MINOXIDIL [Concomitant]
     Active Substance: MINOXIDIL
  15. NIFEDIPINE [Concomitant]
     Active Substance: NIFEDIPINE
  16. ONDANSETRON [Concomitant]
     Active Substance: ONDANSETRON
  17. PANTOPRAZOLE [Concomitant]
     Active Substance: PANTOPRAZOLE

REACTIONS (2)
  - Hospitalisation [Unknown]
  - Malaise [Not Recovered/Not Resolved]

NARRATIVE: CASE EVENT DATE: 20250617
